FAERS Safety Report 9412635 (Version 1)
Quarter: 2013Q3

REPORT INFORMATION
  Report Type: Spontaneous
  Country: US (occurrence: US)
  Receive Date: 20130722
  Receipt Date: 20130722
  Transmission Date: 20140515
  Serious: No
  Sender: FDA-Public Use
  Company Number: US-TARO-2013P1003404

PATIENT
  Age: 72 Year
  Sex: Female
  Weight: 97.52 kg

DRUGS (27)
  1. CLOTRIMAZOLE AND BETAMETHASONE DIPROPIONATE [Suspect]
     Route: 061
     Dates: start: 20121203, end: 20130314
  2. BENICAR HCT [Concomitant]
  3. BENICAR [Concomitant]
  4. VIMPAT [Concomitant]
  5. CHEWABLE ASPIRIN [Concomitant]
  6. GENERIC ZYRTEC [Concomitant]
  7. AMLODIPINE [Concomitant]
  8. ESTRADIOL [Concomitant]
     Route: 067
  9. NYSTATIN POWDER [Concomitant]
     Route: 061
  10. NAMENDA [Concomitant]
  11. VITAMIN E [Concomitant]
  12. VITAMIN B COMPLEX 100 [Concomitant]
  13. VITAMIN D3 [Concomitant]
     Dates: end: 20130301
  14. VITAMIN D3 [Concomitant]
     Dates: start: 20130302
  15. CALCIUM WITH VITAMIN D [Concomitant]
     Dates: end: 20130301
  16. VITAMIN C [Concomitant]
  17. COQ10 [Concomitant]
  18. OMEGA Q PLUS [Concomitant]
  19. FLAXSEED GRANULES [Concomitant]
  20. RED RICE YEAST [Concomitant]
  21. GENERIC METAMUCIL [Concomitant]
  22. SALINE [Concomitant]
     Route: 045
  23. PROAIR INHALER [Concomitant]
  24. UNSPECIFIED ALLERGY SHOTS [Concomitant]
     Dates: end: 20130313
  25. UNSPECIFIED ALLERGY SHOTS [Concomitant]
     Dates: start: 20130313
  26. ADVAIR [Concomitant]
     Dates: end: 201302
  27. NASACORT [Concomitant]
     Dates: end: 201302

REACTIONS (7)
  - Erythema [Recovering/Resolving]
  - Application site pain [Recovering/Resolving]
  - Poor peripheral circulation [Recovering/Resolving]
  - Sleep disorder [Not Recovered/Not Resolved]
  - Eosinophil count increased [Unknown]
  - Micturition urgency [Recovering/Resolving]
  - Insomnia [Not Recovered/Not Resolved]
